FAERS Safety Report 9145375 (Version 2)
Quarter: 2013Q2

REPORT INFORMATION
  Report Type: Spontaneous
  Country: JP (occurrence: JP)
  Receive Date: 20130307
  Receipt Date: 20130422
  Transmission Date: 20140414
  Serious: Yes (Other)
  Sender: FDA-Public Use
  Company Number: JP-BAYER-2013-028953

PATIENT
  Age: 37 Year
  Sex: Female

DRUGS (3)
  1. MIRENA [Suspect]
     Indication: CONTRACEPTION
     Dosage: 20 MCG/24HR, CONT
     Route: 015
     Dates: start: 20120810
  2. MAGMITT [Concomitant]
     Dosage: DAILY DOSE 1980 MG
     Route: 048
  3. ALOSENN [Concomitant]
     Dosage: DAILY DOSE .5 G
     Route: 048

REACTIONS (2)
  - Uterine leiomyoma [Recovering/Resolving]
  - Abdominal distension [Recovering/Resolving]
